FAERS Safety Report 25846629 (Version 2)
Quarter: 2025Q3

REPORT INFORMATION
  Report Type: Report from Study
  Country: JP (occurrence: JP)
  Receive Date: 20250925
  Receipt Date: 20250925
  Transmission Date: 20251020
  Serious: Yes (Other)
  Sender: LEO PHARM
  Company Number: JP-LEO Pharma-382930

PATIENT
  Age: 23 Year
  Sex: Female

DRUGS (6)
  1. PROTOPIC [Suspect]
     Active Substance: TACROLIMUS
     Indication: Dermatitis atopic
     Dosage: APPROPRIATE AMOUNT
     Route: 003
     Dates: start: 20250530, end: 20250623
  2. BETAMETHASONE DIPROPIONATE [Concomitant]
     Active Substance: BETAMETHASONE DIPROPIONATE
     Indication: Dermatitis atopic
     Dosage: APPROPRIATE AMOUNT
     Route: 003
  3. LOCOID [Concomitant]
     Active Substance: HYDROCORTISONE BUTYRATE
     Indication: Dermatitis atopic
     Dosage: APPROPRIATE AMOUNT
     Route: 003
  4. GLYCOSAMINOGLYCANS [Concomitant]
     Active Substance: GLYCOSAMINOGLYCANS
     Indication: Dermatitis atopic
     Dosage: APPROPRIATE AMOUNT/ HEPARINOID, SOFT OINTMENT
     Route: 003
  5. Moizerto [Concomitant]
     Indication: Dermatitis atopic
     Dosage: APPROPRIATE AMOUNT
     Route: 003
  6. ADBRY [Suspect]
     Active Substance: TRALOKINUMAB-LDRM
     Indication: Dermatitis atopic
     Route: 058
     Dates: start: 20250501

REACTIONS (2)
  - Eczema herpeticum [Recovered/Resolved]
  - Eczema herpeticum [Recovered/Resolved]

NARRATIVE: CASE EVENT DATE: 20250621
